FAERS Safety Report 9905434 (Version 1)
Quarter: 2014Q1

REPORT INFORMATION
  Report Type: Spontaneous
  Country: IN (occurrence: None)
  Receive Date: 20140211
  Receipt Date: 20140211
  Transmission Date: 20141002
  Serious: Yes (Other)
  Sender: FDA-Public Use
  Company Number: IPC201401-000066

PATIENT
  Age: 55 Year
  Sex: Male

DRUGS (6)
  1. HYDROXYCHLOROQUINE SULFATE (HYDROXYCHLOROQUINE SULFATE) (HYDROXYCHLOROQUINE SULFATE) [Suspect]
     Indication: URTICARIA
     Dosage: 400 MG, 400 MG DAILY, ORAL
     Route: 048
  2. LEFLUNOMIDE [Suspect]
     Indication: RHEUMATOID ARTHRITIS
  3. METHOTREXATE (METHOTREXATE) (METHOTREXATE) [Suspect]
     Indication: RHEUMATOID ARTHRITIS
     Dosage: 2.1429 MG, 15 MG WEEKLY
  4. PREDNISOLONE (PREDNISOLONE) (PREDNISOLONE) [Suspect]
     Dosage: 7.5-10 MG
  5. SULFASALAZINE (SULFASALAZINE) (SULFASALAZINE) [Concomitant]
  6. MINOCYCLINE (MINOCYCLINE) (MINOCYCLINE) [Concomitant]

REACTIONS (7)
  - Aphthous stomatitis [None]
  - Pruritus [None]
  - Urticaria [None]
  - Skin lesion [None]
  - Gait disturbance [None]
  - Leprosy [None]
  - Rash erythematous [None]
